FAERS Safety Report 7054616-7 (Version None)
Quarter: 2010Q4

REPORT INFORMATION
  Report Type: 
  Country: None (occurrence: None)
  Receive Date: 20101020
  Receipt Date: 20101012
  Transmission Date: 20110411
  Serious: Yes (Disabling)
  Sender: FDA-Public Use
  Company Number: DE-B.I. PHARMACEUTICALS,INC./RIDGEFIELD-2010-DE-05543DE

PATIENT
  Age: 45 Year
  Sex: Male

DRUGS (3)
  1. VIRAMUNE [Suspect]
     Indication: HIV INFECTION
     Dosage: 400 MG
     Route: 048
     Dates: start: 20000119
  2. COMBIVIR [Concomitant]
     Indication: HIV INFECTION
     Dates: start: 20000119
  3. OMEPRAZOLE [Concomitant]
     Indication: REFLUX OESOPHAGITIS
     Dosage: 20 MG
     Route: 048
     Dates: start: 20060310

REACTIONS (2)
  - SYPHILIS [None]
  - VENOUS THROMBOSIS [None]
